FAERS Safety Report 14387741 (Version 2)
Quarter: 2019Q3

REPORT INFORMATION
  Report Type: Spontaneous
  Country: US (occurrence: US)
  Receive Date: 20180115
  Receipt Date: 20190801
  Transmission Date: 20191004
  Serious: Yes (Other)
  Sender: FDA-Public Use
  Company Number: US-SA-2017SA186850

PATIENT
  Age: 61 Year
  Sex: Female
  Weight: 102 kg

DRUGS (10)
  1. ALLEGRA [Concomitant]
     Active Substance: FEXOFENADINE HYDROCHLORIDE
     Dosage: UNK
  2. METFORMIN [Concomitant]
     Active Substance: METFORMIN HYDROCHLORIDE
     Dosage: UNK
  3. TAXOTERE [Suspect]
     Active Substance: DOCETAXEL
     Dosage: 75 MG/M2, UNK
     Route: 042
     Dates: start: 20110830, end: 20110830
  4. NEOSAR [Concomitant]
     Active Substance: CYCLOPHOSPHAMIDE
     Indication: BREAST CANCER FEMALE
     Dosage: UNK
  5. DOXAZOSIN [Concomitant]
     Active Substance: DOXAZOSIN MESYLATE
     Dosage: UNK
  6. LIPITOR [Concomitant]
     Active Substance: ATORVASTATIN CALCIUM
     Dosage: UNK
  7. FLUTICASONE. [Concomitant]
     Active Substance: FLUTICASONE
     Dosage: UNK
  8. LISINOPRIL. [Concomitant]
     Active Substance: LISINOPRIL
     Dosage: UNK
  9. TAXOTERE [Suspect]
     Active Substance: DOCETAXEL
     Indication: BREAST CANCER
     Dosage: 75 MG/M2, QM
     Route: 042
     Dates: start: 20110218, end: 20110218
  10. NASONEX [Concomitant]
     Active Substance: MOMETASONE FUROATE
     Dosage: UNK

REACTIONS (1)
  - Alopecia [Recovering/Resolving]

NARRATIVE: CASE EVENT DATE: 201102
